FAERS Safety Report 4733935-0 (Version None)
Quarter: 2005Q3

REPORT INFORMATION
  Report Type: 
  Country: None (occurrence: None)
  Receive Date: 20050721
  Receipt Date: 20050429
  Transmission Date: 20060218
  Serious: No
  Sender: FDA-Public Use
  Company Number: 2005SP000467

PATIENT
  Age: 27 Year
  Sex: Male
  Weight: 90.7194 kg

DRUGS (5)
  1. LUNESTA [Suspect]
     Indication: INSOMNIA
     Dosage: 2 MG; HS; ORAL
     Route: 048
     Dates: start: 20050426
  2. LAMOTRIGINE [Suspect]
     Indication: BIPOLAR DISORDER
     Dosage: 25 MG; HS; ORAL
     Route: 048
     Dates: start: 20050426
  3. TOPAMAX [Concomitant]
  4. PROZAC [Concomitant]
  5. SEROQUEL [Concomitant]

REACTIONS (1)
  - DYSGEUSIA [None]
